FAERS Safety Report 5481986-3 (Version None)
Quarter: 2007Q4

REPORT INFORMATION
  Report Type: 
  Country: None (occurrence: None)
  Receive Date: 20071005
  Receipt Date: 20070921
  Transmission Date: 20080405
  Serious: Yes (Other)
  Sender: FDA-Public Use
  Company Number: 07102262

PATIENT
  Age: 82 Year
  Sex: Female

DRUGS (3)
  1. PHENYTOIN SODIUM [Suspect]
     Indication: CONVULSION
     Dosage: 100MG, TID, ORAL
     Route: 048
  2. DIOVAN [Concomitant]
  3. TOPROL-XL [Concomitant]

REACTIONS (2)
  - CONVULSION [None]
  - SPEECH DISORDER [None]
